FAERS Safety Report 20305381 (Version 1)
Quarter: 2022Q1

REPORT INFORMATION
  Report Type: Spontaneous
  Country: SE (occurrence: SE)
  Receive Date: 20220106
  Receipt Date: 20220106
  Transmission Date: 20220424
  Serious: Yes (Hospitalization, Other)
  Sender: FDA-Public Use
  Company Number: None

PATIENT
  Age: 20 Year
  Sex: Male
  Weight: 58 kg

DRUGS (10)
  1. HALOPERIDOL DECANOATE [Suspect]
     Active Substance: HALOPERIDOL DECANOATE
     Indication: Psychotic disorder
     Dosage: 100 MG/ML 1 ML INJEKTION
     Route: 030
     Dates: start: 20211029, end: 20211104
  2. Ibumetin 400 mg filmdragerade tabletter [Concomitant]
     Dosage: ; AS REQUIRED
     Route: 048
  3. Akineton 2 mg tabletter [Concomitant]
  4. Levomepromazine Orion 25 mg tabletter [Concomitant]
     Dosage: ; AS REQUIRED
  5. Alvedon forte 1 g filmdragerade tabletter [Concomitant]
     Dosage: ; AS REQUIRED
  6. LORAZEPAM [Concomitant]
     Active Substance: LORAZEPAM
     Dosage: ; AS REQUIRED
     Route: 030
  7. PROPAVAN 25 MG TABLETTER [Concomitant]
     Dosage: ; AS REQUIRED
     Route: 048
  8. Temesta 1 mg tablett [Concomitant]
     Dosage: 1 MG 1 VB; AS REQUIRED
     Route: 048
     Dates: start: 20210910
  9. Haldol 5 mg/ml injektionsvatska, l sning [Concomitant]
     Dosage: ; AS REQUIRED
  10. ZOLPIDEM [Concomitant]
     Active Substance: ZOLPIDEM TARTRATE
     Dosage: ; AS REQUIRED
     Route: 048

REACTIONS (5)
  - Dystonia [Recovering/Resolving]
  - Catatonia [Recovering/Resolving]
  - Tremor [Recovering/Resolving]
  - Bradykinesia [Recovering/Resolving]
  - Akinesia [Recovering/Resolving]

NARRATIVE: CASE EVENT DATE: 20211001
